FAERS Safety Report 9464363 (Version 1)
Quarter: 2013Q3

REPORT INFORMATION
  Report Type: Spontaneous
  Country: CR (occurrence: CR)
  Receive Date: 20130819
  Receipt Date: 20130819
  Transmission Date: 20140515
  Serious: Yes (Other)
  Sender: FDA-Public Use
  Company Number: CR-PFIZER INC-2013238810

PATIENT
  Sex: Male

DRUGS (2)
  1. GEODON [Suspect]
     Indication: BIPOLAR DISORDER
     Dosage: 60 MG, UNK
     Dates: start: 201306, end: 201307
  2. GEODON [Suspect]
     Dosage: 40 MG, UNK
     Dates: start: 201307, end: 20130807

REACTIONS (6)
  - Panic attack [Unknown]
  - Anxiety [Unknown]
  - Somnolence [Unknown]
  - Feeling abnormal [Unknown]
  - Dizziness [Unknown]
  - Hypoaesthesia [Unknown]
